FAERS Safety Report 5732153-7 (Version None)
Quarter: 2008Q2

REPORT INFORMATION
  Report Type: 
  Country: None (occurrence: None)
  Receive Date: 20080508
  Receipt Date: 20080505
  Transmission Date: 20081010
  Serious: Yes (Death)
  Sender: FDA-Public Use
  Company Number: SE-PFIZER INC-2005144089

PATIENT
  Sex: Male
  Weight: 80 kg

DRUGS (11)
  1. DIFLUCAN [Suspect]
     Indication: FUNGAL INFECTION
     Route: 048
     Dates: start: 20050605, end: 20050608
  2. DURAGESIC-100 [Interacting]
     Indication: PAIN
     Route: 062
     Dates: start: 20050401, end: 20050608
  3. VOLTAREN [Concomitant]
     Route: 048
  4. ZOLPIDEM TARTRATE [Concomitant]
     Route: 048
  5. PRIMPERAN TAB [Concomitant]
     Route: 048
  6. MORPHINE [Concomitant]
     Route: 048
  7. RELIV [Concomitant]
     Route: 048
  8. OXASCAND [Concomitant]
     Route: 048
  9. LACTULOSE [Concomitant]
     Route: 048
  10. MYCOSTATIN [Concomitant]
     Route: 048
  11. XYLOCAIN [Concomitant]
     Route: 048

REACTIONS (4)
  - CIRCULATORY COLLAPSE [None]
  - DRUG INTERACTION [None]
  - POISONING [None]
  - RESPIRATORY FAILURE [None]
